FAERS Safety Report 8601354-2 (Version None)
Quarter: 2012Q3

REPORT INFORMATION
  Report Type: 
  Country: None (occurrence: None)
  Receive Date: 20120817
  Receipt Date: 20120809
  Transmission Date: 20120928
  Serious: Yes (Hospitalization, Other)
  Sender: FDA-Public Use
  Company Number: US-JNJFOC-20100806136

PATIENT
  Sex: Female

DRUGS (22)
  1. LISINOPRIL [Concomitant]
     Indication: HYPERTENSION
     Route: 065
  2. LEVAQUIN [Suspect]
     Route: 048
  3. GLYBURIDE [Concomitant]
     Indication: DIABETES MELLITUS
     Route: 065
  4. LEVAQUIN [Suspect]
     Indication: VULVAL ABSCESS
     Route: 048
  5. CARVEDILOL [Concomitant]
     Indication: BLOOD CHOLESTEROL DECREASED
     Route: 065
  6. FLUTICASONE PROPIONATE [Concomitant]
     Indication: ASTHMA
     Route: 065
  7. LEVAQUIN [Suspect]
     Route: 048
     Dates: start: 20030101, end: 20030101
  8. VITAMINS NOS [Concomitant]
     Route: 065
  9. CRESTOR [Concomitant]
     Indication: BLOOD CHOLESTEROL DECREASED
     Route: 065
  10. LEVEMIR [Concomitant]
     Indication: DIABETES MELLITUS
     Route: 065
  11. LEVAQUIN [Suspect]
     Indication: STAPHYLOCOCCAL INFECTION
     Route: 048
     Dates: start: 20030101, end: 20030101
  12. LEVAQUIN [Suspect]
     Dosage: 150 ML
     Route: 042
  13. LEVAQUIN [Suspect]
     Dosage: 150 ML
     Route: 042
  14. LEVAQUIN [Suspect]
     Dosage: 150 ML
     Route: 042
  15. PRAVACHOL [Concomitant]
     Indication: BLOOD CHOLESTEROL DECREASED
     Route: 065
  16. LEVAQUIN [Suspect]
     Indication: SEPSIS
     Route: 048
  17. VICTOZA [Concomitant]
     Indication: DIABETES MELLITUS
     Route: 065
  18. METFORMIN HCL [Concomitant]
     Indication: DIABETES MELLITUS
     Route: 065
  19. ALBUTEROL [Concomitant]
     Indication: ASTHMA
     Route: 065
  20. LEVAQUIN [Suspect]
     Route: 048
     Dates: start: 20030101, end: 20030101
  21. HYDROCHLOROTHIAZIDE [Concomitant]
     Indication: HYPERTENSION
     Route: 065
  22. HUMALOG [Concomitant]
     Indication: DIABETES MELLITUS
     Route: 065

REACTIONS (3)
  - ROTATOR CUFF SYNDROME [None]
  - TENDON RUPTURE [None]
  - TENDONITIS [None]
